FAERS Safety Report 9799548 (Version 1)
Quarter: 2014Q1

REPORT INFORMATION
  Report Type: Spontaneous
  Country: US (occurrence: US)
  Receive Date: 20140106
  Receipt Date: 20140106
  Transmission Date: 20141002
  Serious: No
  Sender: FDA-Public Use
  Company Number: US-GILEAD-2010-0030130

PATIENT
  Age: 49 Year
  Sex: Female

DRUGS (26)
  1. LETAIRIS [Suspect]
     Indication: PULMONARY ARTERIAL HYPERTENSION
     Route: 048
     Dates: start: 20080701
  2. CALTRATE [Concomitant]
  3. ISENTRESS [Concomitant]
  4. PREZISTA [Concomitant]
  5. BENAZEPRIL [Concomitant]
  6. NORVIR [Concomitant]
  7. LANOXIN [Concomitant]
  8. ALBUTEROL [Concomitant]
  9. AMOXICILLIN [Concomitant]
  10. VITAMIN C [Concomitant]
  11. PROMETH /CODEINE [Concomitant]
  12. IBUPROFEN [Concomitant]
  13. SPIRONOLACTONE [Concomitant]
  14. CLOTRIMAZOLE [Concomitant]
  15. FUROSEMIDE [Concomitant]
  16. CALCIUM [Concomitant]
  17. OMEGA 3 [Concomitant]
  18. POTASSIUM [Concomitant]
  19. WARFARIN [Concomitant]
  20. DILTIAZEM [Concomitant]
  21. QUININE SULFATE [Concomitant]
  22. DIPHEN AF [Concomitant]
  23. ACYCLOVIR [Concomitant]
  24. AZITHROMYCIN [Concomitant]
  25. MULTIVITAMIN [Concomitant]
  26. VITAMIN E [Concomitant]

REACTIONS (2)
  - Cough [Unknown]
  - Infection [Unknown]
